FAERS Safety Report 4631258-1 (Version None)
Quarter: 2005Q2

REPORT INFORMATION
  Report Type: 
  Country: None (occurrence: None)
  Receive Date: 20050408
  Receipt Date: 20041126
  Transmission Date: 20051028
  Serious: Yes (Other)
  Sender: FDA-Public Use
  Company Number: DE-MERCK-0412DEU00070

PATIENT
  Age: 56 Year
  Sex: Male

DRUGS (5)
  1. VIOXX [Suspect]
     Route: 048
     Dates: start: 20010921, end: 20020801
  2. THALIDOMIDE [Suspect]
     Indication: PLASMACYTOMA
     Route: 065
     Dates: start: 20011101
  3. DEXAMETHASONE [Concomitant]
     Route: 065
     Dates: start: 20011101
  4. ZOLEDRONATE DISODIUM [Concomitant]
     Route: 065
     Dates: start: 20011101
  5. MORPHINE SULFATE [Concomitant]
     Route: 065

REACTIONS (10)
  - ASTHENIA [None]
  - CARDIOVASCULAR DISORDER [None]
  - COUGH [None]
  - HYPERSENSITIVITY [None]
  - OEDEMA PERIPHERAL [None]
  - PAIN IN EXTREMITY [None]
  - PHLEBITIS [None]
  - PLASMACYTOMA [None]
  - POLYNEUROPATHY [None]
  - URTICARIA [None]
